FAERS Safety Report 18377369 (Version 1)
Quarter: 2020Q4

REPORT INFORMATION
  Report Type: Spontaneous
  Country: CA (occurrence: CA)
  Receive Date: 20201013
  Receipt Date: 20201013
  Transmission Date: 20210114
  Serious: Yes (Other)
  Sender: FDA-Public Use
  Company Number: CA-JNJFOC-20201011704

PATIENT
  Age: 43 Year
  Sex: Male

DRUGS (5)
  1. INFLIXIMAB, RECOMBINANT [Suspect]
     Active Substance: INFLIXIMAB
     Indication: CROHN^S DISEASE
     Route: 042
  2. PURINETHOL [Concomitant]
     Active Substance: MERCAPTOPURINE
     Route: 065
  3. ENTOCORT [Concomitant]
     Active Substance: BUDESONIDE
     Route: 065
  4. MESALAZINE [Concomitant]
     Active Substance: MESALAMINE
  5. HUMIRA [Suspect]
     Active Substance: ADALIMUMAB
     Indication: PRODUCT USED FOR UNKNOWN INDICATION
     Route: 058

REACTIONS (3)
  - Fistula [Recovered/Resolved]
  - Epididymitis [Recovered/Resolved]
  - Fatigue [Recovered/Resolved]
